FAERS Safety Report 7519684-4 (Version None)
Quarter: 2011Q2

REPORT INFORMATION
  Report Type: 
  Country: None (occurrence: None)
  Receive Date: 20110524
  Receipt Date: 20110516
  Transmission Date: 20111010
  Serious: Yes (Death)
  Sender: FDA-Public Use
  Company Number: 1000021020

PATIENT
  Age: 61 Year
  Sex: Female

DRUGS (5)
  1. DIAZEPAM [Concomitant]
  2. CLOZAPINE [Suspect]
     Indication: SCHIZOPHRENIA
     Dosage: 400 MG (200 MG, 2 IN 1 D), ORAL; ORAL
     Route: 048
     Dates: start: 20101029, end: 20110209
  3. CLOZAPINE [Suspect]
     Indication: SCHIZOPHRENIA
     Dosage: 400 MG (200 MG, 2 IN 1 D), ORAL; ORAL
     Route: 048
     Dates: start: 20110209, end: 20110209
  4. AMISULPRIDE (AMISULPRIDE) (AMISULPRIDE) [Concomitant]
  5. CITALOPRAM HYDROBROMIDE [Suspect]
     Indication: DEPRESSION
     Dosage: 20 MG (20 MG, 1 IN 1 D), ORAL; ORAL
     Route: 048
     Dates: start: 20110209, end: 20110209

REACTIONS (4)
  - MALAISE [None]
  - VOMITING [None]
  - MULTIPLE DRUG OVERDOSE [None]
  - REFUSAL OF TREATMENT BY PATIENT [None]
